FAERS Safety Report 5562610-8 (Version None)
Quarter: 2007Q4

REPORT INFORMATION
  Report Type: 
  Country: None (occurrence: None)
  Receive Date: 20071217
  Receipt Date: 20050927
  Transmission Date: 20080405
  Serious: Yes (Other)
  Sender: FDA-Public Use
  Company Number: DE-JNJFOC-20071108581

PATIENT
  Age: 25 Year
  Sex: Male
  Weight: 100 kg

DRUGS (3)
  1. HALOPERIDOOL [Suspect]
     Indication: SCHIZOPHRENIA, RESIDUAL TYPE
     Route: 050
  2. ACE INHIBITORS [Concomitant]
     Indication: HYPERTENSION
     Route: 065
  3. CALCIUM ANTAGONIST [Concomitant]
     Indication: CARDIOVASCULAR DISORDER
     Route: 065

REACTIONS (3)
  - EXTRAPYRAMIDAL DISORDER [None]
  - TARDIVE DYSKINESIA [None]
  - WEIGHT INCREASED [None]
